FAERS Safety Report 7499077-9 (Version None)
Quarter: 2011Q2

REPORT INFORMATION
  Report Type: 
  Country: None (occurrence: None)
  Receive Date: 20110516
  Receipt Date: 20110503
  Transmission Date: 20111010
  Serious: Yes (Hospitalization)
  Sender: FDA-Public Use
  Company Number: 027065

PATIENT
  Sex: Male

DRUGS (1)
  1. LACOSAMIDE [Suspect]
     Dosage: (200 MG BID, 1 TABLET TWICE DAILY ORAL
     Route: 048
     Dates: start: 20100801

REACTIONS (1)
  - MEDICAL DEVICE CHANGE [None]
